FAERS Safety Report 6899198-5 (Version None)
Quarter: 2010Q3

REPORT INFORMATION
  Report Type: 
  Country: None (occurrence: None)
  Receive Date: 20100802
  Receipt Date: 20080209
  Transmission Date: 20110219
  Serious: No
  Sender: FDA-Public Use
  Company Number: US-PFIZER INC-2007099732

PATIENT
  Sex: Male
  Weight: 139.7 kg

DRUGS (2)
  1. LYRICA [Suspect]
     Indication: NEURALGIA
     Route: 048
     Dates: start: 20071115, end: 20071119
  2. LISINOPRIL [Concomitant]

REACTIONS (1)
  - PALPITATIONS [None]
